FAERS Safety Report 8949348 (Version 2)
Quarter: 2013Q1

REPORT INFORMATION
  Report Type: Report from Study
  Country: DE (occurrence: DE)
  Receive Date: 20121206
  Receipt Date: 20130103
  Transmission Date: 20140127
  Serious: Yes (Hospitalization)
  Sender: FDA-Public Use
  Company Number: DE-TEVA-374274USA

PATIENT
  Age: 84 Year
  Sex: Female

DRUGS (6)
  1. TREANDA [Suspect]
     Indication: PLASMA CELL MYELOMA
     Route: 042
     Dates: start: 20120815
  2. PREDNISOLONE [Suspect]
     Route: 042
     Dates: start: 20120815
  3. ZOMETA [Concomitant]
     Dates: start: 20091030
  4. HEPARIN [Concomitant]
     Dates: start: 20120919
  5. INNOHEP [Concomitant]
     Dates: start: 20120929
  6. CIPROFLOXACIN [Concomitant]
     Dates: start: 20120919

REACTIONS (1)
  - Faecaloma [Recovered/Resolved]
